FAERS Safety Report 5627062-8 (Version None)
Quarter: 2008Q1

REPORT INFORMATION
  Report Type: 
  Country: None (occurrence: None)
  Receive Date: 20080116
  Receipt Date: 20070308
  Transmission Date: 20080703
  Serious: Yes (Other)
  Sender: FDA-Public Use
  Company Number: BDI-009225

PATIENT
  Age: 46 Year
  Sex: Male

DRUGS (7)
  1. PROHANCE [Suspect]
     Indication: BACK PAIN
     Dosage: IV
     Route: 042
     Dates: start: 20070307, end: 20070307
  2. PROHANCE [Suspect]
     Indication: NUCLEAR MAGNETIC RESONANCE IMAGING
     Dosage: IV
     Route: 042
     Dates: start: 20070307, end: 20070307
  3. CENTRUM [Concomitant]
  4. FLEXERIL [Concomitant]
  5. PRINIVIL [Concomitant]
  6. HYDRODIURIL [Concomitant]
  7. DILAUDID [Concomitant]

REACTIONS (1)
  - ANAPHYLACTIC REACTION [None]
